FAERS Safety Report 7953941-2 (Version None)
Quarter: 2011Q4

REPORT INFORMATION
  Report Type: 
  Country: None (occurrence: None)
  Receive Date: 20111129
  Receipt Date: 20111114
  Transmission Date: 20120403
  Serious: Yes (Death, Hospitalization)
  Sender: FDA-Public Use
  Company Number: 2011MA016420

PATIENT
  Sex: Female
  Weight: 127.0072 kg

DRUGS (31)
  1. LANTUS [Concomitant]
  2. LISINOPRIL [Concomitant]
  3. MAGNESIUM OXIDE [Concomitant]
  4. METOLAZONE [Concomitant]
  5. ALPRAZOLAM [Concomitant]
  6. DEXAMETHASONE [Concomitant]
  7. FUROSEMIDE [Concomitant]
  8. LYRICA [Concomitant]
  9. ALLOPURINOL [Concomitant]
  10. CEPHALEXIN [Concomitant]
  11. HYDROXYZINE [Concomitant]
  12. PREDNISONE TAB [Concomitant]
  13. SPIRONOLACTONE [Concomitant]
  14. DIGOXIN [Suspect]
     Indication: CARDIAC DISORDER
     Dosage: 0.125 MGL QOD;
     Dates: start: 20070201, end: 20071121
  15. ACYCLOVIR [Concomitant]
  16. AMLODIPINE [Concomitant]
  17. HYDROCODONE BITARTRATE AND ACETAMINOPHEN [Concomitant]
  18. LEVAQUIN [Concomitant]
  19. TRAMADOL HCL [Concomitant]
  20. COREG [Concomitant]
  21. SUCRALFATE [Concomitant]
  22. AMILORIDE HYDROCHLORIDE [Concomitant]
  23. CRESTOR [Concomitant]
  24. FLUOXETINE [Concomitant]
  25. HUMALOG [Concomitant]
  26. INSPRA [Concomitant]
  27. AZITHROMYCIN [Concomitant]
  28. CARVEDILOL [Concomitant]
  29. NOVOLIN INSULIN [Concomitant]
  30. NEXIUM [Concomitant]
  31. POTASSIUM CHLORIDE [Concomitant]

REACTIONS (7)
  - ISCHAEMIC CARDIOMYOPATHY [None]
  - TYPE 2 DIABETES MELLITUS [None]
  - RENAL FAILURE CHRONIC [None]
  - CARDIAC FAILURE CONGESTIVE [None]
  - PULMONARY HYPERTENSION [None]
  - MULTIPLE INJURIES [None]
  - PAIN [None]
